FAERS Safety Report 9496152 (Version 1)
Quarter: 2013Q3

REPORT INFORMATION
  Report Type: Spontaneous
  Country: CN (occurrence: None)
  Receive Date: 20130829
  Receipt Date: 20130829
  Transmission Date: 20140515
  Serious: Yes (Other)
  Sender: FDA-Public Use
  Company Number: SYM-2013-09969

PATIENT
  Age: 37 Year
  Sex: Male

DRUGS (2)
  1. ALDARA [Suspect]
     Indication: ANOGENITAL WARTS
     Dosage: EVERY OTHER NIGHT
  2. LASER TREATMENT [Suspect]
     Indication: ANOGENITAL WARTS

REACTIONS (1)
  - Lichen planus [None]
